FAERS Safety Report 20876459 (Version 2)
Quarter: 2022Q4

REPORT INFORMATION
  Report Type: Spontaneous
  Country: AT (occurrence: AT)
  Receive Date: 20220526
  Receipt Date: 20221214
  Transmission Date: 20230112
  Serious: Yes (Life-Threatening)
  Sender: FDA-Public Use
  Company Number: AT-Accord-264409

PATIENT
  Age: 54 Year
  Sex: Female

DRUGS (4)
  1. CARBOPLATIN [Suspect]
     Active Substance: CARBOPLATIN
     Indication: Product used for unknown indication
     Dosage: STRENGTH: 10MG/ML
     Dates: start: 20220504, end: 20220504
  2. APREPITANT [Concomitant]
     Active Substance: APREPITANT
     Dosage: 125 MG, STRENGTH: 10MG/ML
     Dates: start: 20220504, end: 20220504
  3. DEXAMETHASONE [Concomitant]
     Active Substance: DEXAMETHASONE
     Dosage: 40 MG - AMPOULE
     Dates: start: 20220504, end: 20220504
  4. ZOFRAN [Concomitant]
     Active Substance: ONDANSETRON HYDROCHLORIDE
     Dosage: 8 MG - AMPOULE
     Dates: start: 20220504, end: 20220504

REACTIONS (5)
  - Rash [Unknown]
  - Pruritus [Unknown]
  - Sensation of foreign body [Unknown]
  - Oxygen saturation decreased [Unknown]
  - Blood pressure decreased [Unknown]

NARRATIVE: CASE EVENT DATE: 20220504
